FAERS Safety Report 15428418 (Version 1)
Quarter: 2018Q3

REPORT INFORMATION
  Report Type: Report from Study
  Country: BE (occurrence: BE)
  Receive Date: 20180926
  Receipt Date: 20180926
  Transmission Date: 20181010
  Serious: Yes (Death, Other)
  Sender: FDA-Public Use
  Company Number: BE-ROCHE-2121913

PATIENT
  Age: 80 Year
  Sex: Female

DRUGS (1)
  1. ATEZOLIZUMAB. [Suspect]
     Active Substance: ATEZOLIZUMAB
     Indication: CERVIX CARCINOMA RECURRENT
     Dosage: MOST RECENT DOSE PRIOR TO SAE ON 09/FEB/2018.
     Route: 042
     Dates: end: 20180413

REACTIONS (4)
  - General physical health deterioration [Recovered/Resolved]
  - General physical health deterioration [Fatal]
  - Hydronephrosis [Recovered/Resolved]
  - Urinary retention [Recovering/Resolving]

NARRATIVE: CASE EVENT DATE: 20180122
